FAERS Safety Report 11031030 (Version 1)
Quarter: 2015Q2

REPORT INFORMATION
  Report Type: Spontaneous
  Country: US (occurrence: None)
  Receive Date: 20150414
  Receipt Date: 20150414
  Transmission Date: 20150821
  Serious: Yes (Other)
  Sender: FDA-Public Use
  Company Number: None

PATIENT
  Age: 27 Year
  Sex: Female
  Weight: 83.92 kg

DRUGS (4)
  1. PARAGARD T 380A [Concomitant]
     Active Substance: COPPER
  2. EPIPEN [Concomitant]
     Active Substance: EPINEPHRINE
  3. ALLEGRA [Concomitant]
     Active Substance: FEXOFENADINE HYDROCHLORIDE
  4. CYMBALTA [Suspect]
     Active Substance: DULOXETINE HYDROCHLORIDE
     Indication: FIBROMYALGIA
     Dosage: 1 PILL ONCE DAILY TAKEN BY MOUTH
     Route: 048
     Dates: start: 20150311, end: 20150313

REACTIONS (3)
  - Headache [None]
  - Dysphagia [None]
  - Cognitive disorder [None]

NARRATIVE: CASE EVENT DATE: 20150311
